FAERS Safety Report 8838191 (Version 1)
Quarter: 2012Q4

REPORT INFORMATION
  Report Type: 
  Country: US (occurrence: US)
  Receive Date: 20121012
  Receipt Date: 20121012
  Transmission Date: 20130627
  Serious: Yes (Hospitalization)
  Sender: FDA-Public Use
  Company Number: US-PFIZER INC-2012253967

PATIENT
  Sex: Male

DRUGS (1)
  1. DEPO-MEDROL [Suspect]
     Dosage: 40 mg, single
     Route: 030
     Dates: start: 20120210, end: 20120210

REACTIONS (1)
  - Fungal infection [Recovering/Resolving]
